FAERS Safety Report 21400102 (Version 1)
Quarter: 2022Q4

REPORT INFORMATION
  Report Type: Spontaneous
  Country: DK (occurrence: DK)
  Receive Date: 20221002
  Receipt Date: 20221002
  Transmission Date: 20230113
  Serious: Yes (Other)
  Sender: FDA-Public Use
  Company Number: None

PATIENT
  Age: 62 Year
  Sex: Male

DRUGS (2)
  1. DIAZEPAM [Suspect]
     Active Substance: DIAZEPAM
     Indication: Drug withdrawal maintenance therapy
     Dosage: STRENGTH:UNK. DOSE:GRADUAL INCREASE 5MG/DAY TO 20MG/DAY(MAR2020), DOWN TO 2.5-5MG/DAY P.N.(JUL2020),
     Route: 048
     Dates: start: 20200115
  2. OXAZEPAM [Suspect]
     Active Substance: OXAZEPAM
     Indication: Prophylaxis against alcoholic withdrawal syndrome
     Dosage: 30 MILLIGRAM DAILY; STRENGTH: 15MG DOSE: 30MG/DAY, TAPERING START 15JAN2020. 2019:UNSUCCESSFULLY TRI
     Route: 048
     Dates: start: 2001, end: 20200122

REACTIONS (9)
  - Suicidal ideation [Recovered/Resolved]
  - Restlessness [Recovered/Resolved]
  - Drug withdrawal syndrome [Unknown]
  - Anxiety [Not Recovered/Not Resolved]
  - Memory impairment [Not Recovered/Not Resolved]
  - Tremor [Recovered/Resolved]
  - Hyperhidrosis [Recovered/Resolved]
  - Emotional distress [Not Recovered/Not Resolved]
  - Drug withdrawal convulsions [Recovered/Resolved]

NARRATIVE: CASE EVENT DATE: 20190101
